FAERS Safety Report 5005938-2 (Version None)
Quarter: 2006Q1

REPORT INFORMATION
  Report Type: 
  Country: None (occurrence: None)
  Receive Date: 20060320
  Receipt Date: 20050222
  Transmission Date: 20060701
  Serious: Yes (Other)
  Sender: FDA-Public Use
  Company Number: 2005-02-1775

PATIENT
  Sex: Female

DRUGS (4)
  1. PEG-INTRON [Suspect]
     Indication: HEPATITIS C
     Dates: start: 20050101, end: 20050101
  2. PEG-INTRON [Suspect]
     Indication: HEPATITIS C
     Dates: end: 20050101
  3. RIBAVIRIN [Suspect]
     Indication: HEPATITIS C
     Dates: start: 20050101, end: 20050101
  4. RIBAVIRIN [Suspect]
     Indication: HEPATITIS C
     Dates: end: 20050101

REACTIONS (6)
  - ANAEMIA [None]
  - ASTHENIA [None]
  - DIZZINESS [None]
  - DYSPNOEA [None]
  - FATIGUE [None]
  - LOSS OF CONSCIOUSNESS [None]
